FAERS Safety Report 8325783 (Version 2)
Quarter: 2012Q4

REPORT INFORMATION
  Report Type: 
  Country: US (occurrence: US)
  Receive Date: 20120106
  Receipt Date: 20121207
  Transmission Date: 20130627
  Serious: Yes (Death, Hospitalization)
  Sender: FDA-Public Use
  Company Number: US-GLAXOSMITHKLINE-A0778522A

PATIENT
  Sex: Female
  Weight: 64.5 kg

DRUGS (1)
  1. AVANDIA [Suspect]
     Indication: TYPE 2 DIABETES MELLITUS
     Route: 048
     Dates: start: 20010814, end: 20050722

REACTIONS (2)
  - Acute myocardial infarction [Fatal]
  - Condition aggravated [Unknown]
